FAERS Safety Report 21234829 (Version 1)
Quarter: 2022Q3

REPORT INFORMATION
  Report Type: Report from Study
  Country: US (occurrence: US)
  Receive Date: 20220820
  Receipt Date: 20220820
  Transmission Date: 20221027
  Serious: Yes (Hospitalization)
  Sender: FDA-Public Use
  Company Number: US-ABBVIE-22K-163-4510416-00

PATIENT
  Age: 62 Year
  Sex: Female

DRUGS (1)
  1. SKYRIZI [Suspect]
     Active Substance: RISANKIZUMAB-RZAA
     Indication: Product used for unknown indication
     Route: 058
     Dates: start: 202204

REACTIONS (4)
  - Facial bones fracture [Unknown]
  - Cerebral haemorrhage [Unknown]
  - Fall [Unknown]
  - Nasal injury [Unknown]

NARRATIVE: CASE EVENT DATE: 20220801
